FAERS Safety Report 6645005-5 (Version None)
Quarter: 2010Q1

REPORT INFORMATION
  Report Type: 
  Country: None (occurrence: None)
  Receive Date: 20100317
  Receipt Date: 20100304
  Transmission Date: 20100710
  Serious: Yes (Death)
  Sender: FDA-Public Use
  Company Number: 2010AP000240

PATIENT
  Age: 25 Year
  Sex: Male

DRUGS (6)
  1. SERTRALINE HCL [Suspect]
     Indication: ANXIETY DISORDER
     Dosage: PO
     Route: 048
  2. LORAZEPAM [Suspect]
  3. BUSPIRONE HCL [Suspect]
  4. MELATONIN [Suspect]
  5. METHADONE HCL [Suspect]
  6. GUAIFENESIN [Suspect]

REACTIONS (9)
  - ACCIDENTAL DEATH [None]
  - BRAIN OEDEMA [None]
  - CARDIOMEGALY [None]
  - DRUG INTERACTION [None]
  - GRANULOMA [None]
  - MULTIPLE DRUG OVERDOSE ACCIDENTAL [None]
  - PULMONARY OEDEMA [None]
  - RHINORRHOEA [None]
  - SUBSTANCE ABUSE [None]
